FAERS Safety Report 25213963 (Version 1)
Quarter: 2025Q2

REPORT INFORMATION
  Report Type: Spontaneous
  Country: CN (occurrence: CN)
  Receive Date: 20250418
  Receipt Date: 20250418
  Transmission Date: 20250716
  Serious: Yes (Hospitalization)
  Sender: IPSEN BIOPHARMACEUTICALS, INC.
  Company Number: None

PATIENT
  Age: 64 Year
  Sex: Female
  Weight: 52.5 kg

DRUGS (5)
  1. IRINOTECAN HYDROCHLORIDE [Suspect]
     Active Substance: IRINOTECAN HYDROCHLORIDE
     Indication: Pancreatic carcinoma
     Route: 042
     Dates: start: 20250312, end: 20250312
  2. IPAROMLIMAB [Suspect]
     Active Substance: IPAROMLIMAB
     Indication: Pancreatic carcinoma
     Route: 042
     Dates: start: 20250312, end: 20250312
  3. CATEQUENTINIB [Concomitant]
     Active Substance: CATEQUENTINIB
     Indication: Pancreatic carcinoma
     Dates: start: 20250312
  4. FILGRASTIM [Concomitant]
     Active Substance: FILGRASTIM
     Indication: Platelet count decreased
  5. TUVONRALIMAB [Suspect]
     Active Substance: TUVONRALIMAB

REACTIONS (4)
  - Hypercoagulation [Recovering/Resolving]
  - Thrombocytopenia [Recovering/Resolving]
  - Granulocytopenia [Recovering/Resolving]
  - Product use issue [Recovered/Resolved]

NARRATIVE: CASE EVENT DATE: 20250312
